FAERS Safety Report 10440515 (Version 1)
Quarter: 2014Q3

REPORT INFORMATION
  Report Type: Spontaneous
  Country: US (occurrence: US)
  Receive Date: 20140909
  Receipt Date: 20140909
  Transmission Date: 20150326
  Serious: Yes (Other)
  Sender: FDA-Public Use
  Company Number: US-BRISTOL-MYERS SQUIBB COMPANY-21344304

PATIENT
  Age: 56 Year
  Sex: Female
  Weight: 80.27 kg

DRUGS (4)
  1. LANTUS [Concomitant]
     Active Substance: INSULIN GLARGINE
  2. BYDUREON [Suspect]
     Active Substance: EXENATIDE
     Indication: TYPE 2 DIABETES MELLITUS
     Dosage: 2 MG, QWK
     Route: 065
     Dates: start: 20140816
  3. INSULIN [Concomitant]
     Active Substance: INSULIN NOS
  4. METFORMIN HYDROCHLORIDE. [Concomitant]
     Active Substance: METFORMIN HYDROCHLORIDE

REACTIONS (2)
  - Headache [Not Recovered/Not Resolved]
  - Extrasystoles [Unknown]

NARRATIVE: CASE EVENT DATE: 20140816
